FAERS Safety Report 5408115-6 (Version None)
Quarter: 2007Q3

REPORT INFORMATION
  Report Type: 
  Country: None (occurrence: None)
  Receive Date: 20070806
  Receipt Date: 20070806
  Transmission Date: 20080115
  Serious: Yes (Hospitalization)
  Sender: FDA-Public Use
  Company Number: None

PATIENT
  Age: 58 Year
  Sex: Male

DRUGS (1)
  1. ASPIRIN [Suspect]
     Dates: start: 20070524, end: 20070524

REACTIONS (4)
  - NAUSEA [None]
  - OVERDOSE [None]
  - RESPIRATORY ALKALOSIS [None]
  - VOMITING [None]
